FAERS Safety Report 5191617-8 (Version None)
Quarter: 2006Q4

REPORT INFORMATION
  Report Type: 
  Country: None (occurrence: None)
  Receive Date: 20061219
  Receipt Date: 20061204
  Transmission Date: 20070319
  Serious: Yes (Hospitalization)
  Sender: FDA-Public Use
  Company Number: NL-2006-032642

PATIENT
  Age: 55 Year
  Sex: Female

DRUGS (6)
  1. BETAFERON 250 UG, AND COPAXONE (BETAFERON (SH Y 579 E)) INJECTION, 250 [Suspect]
     Indication: RELAPSING-REMITTING MULTIPLE SCLEROSIS
     Dosage: 8 OR 16 IU, EVERY 2D, SUBCUTANEOUS
     Route: 058
     Dates: start: 20050314
  2. ESTRADIOL [Concomitant]
  3. PLAVIX [Concomitant]
  4. SIMVASTATIN [Concomitant]
  5. ACETYLSALICYLIC ACID SRT [Concomitant]
  6. TRIAMTERENE AND HYDROCHLOROTHIAZIDE [Concomitant]

REACTIONS (5)
  - ANGINA PECTORIS [None]
  - BONE PAIN [None]
  - DYSPNOEA [None]
  - SMALL INTESTINAL PERFORATION [None]
  - TACHYCARDIA [None]
